FAERS Safety Report 6797782-0 (Version None)
Quarter: 2010Q3

REPORT INFORMATION
  Report Type: 
  Country: None (occurrence: None)
  Receive Date: 20100623
  Receipt Date: 20100610
  Transmission Date: 20110219
  Serious: Yes (Hospitalization)
  Sender: FDA-Public Use
  Company Number: 2010AL003509

PATIENT
  Age: 28 Year
  Sex: Female

DRUGS (5)
  1. NIFEDIPINE [Suspect]
     Indication: RAYNAUD'S PHENOMENON
     Dosage: 10 MG; PO
     Route: 048
  2. CEFRADINE [Concomitant]
  3. COLPERMIN [Concomitant]
  4. MEBEVERINE [Concomitant]
  5. OMEPRAZOLE [Concomitant]

REACTIONS (6)
  - BURNING SENSATION [None]
  - DIZZINESS [None]
  - GENERALISED ERYTHEMA [None]
  - HEADACHE [None]
  - PALPITATIONS [None]
  - TREMOR [None]
